FAERS Safety Report 9752241 (Version 1)
Quarter: 2013Q4

REPORT INFORMATION
  Report Type: Spontaneous
  Country: US (occurrence: None)
  Receive Date: 20131212
  Receipt Date: 20131212
  Transmission Date: 20140711
  Serious: No
  Sender: FDA-Public Use
  Company Number: None

PATIENT
  Age: 71 Year
  Sex: Male

DRUGS (5)
  1. METRONIDAZOLE [Suspect]
     Indication: CLOSTRIDIUM DIFFICILE INFECTION
     Dosage: 500MG 30 THEN 42
     Route: 048
     Dates: start: 20131101, end: 20131125
  2. GABA PENTIN [Concomitant]
  3. MULTIVITAMIN [Concomitant]
  4. CALCIUM [Concomitant]
  5. FLAX SEED OIL [Concomitant]

REACTIONS (6)
  - Urticaria [None]
  - Gastrooesophageal reflux disease [None]
  - Muscle spasms [None]
  - Pain [None]
  - Rash [None]
  - Hypersensitivity [None]
